FAERS Safety Report 24397728 (Version 1)
Quarter: 2024Q4

REPORT INFORMATION
  Report Type: Spontaneous
  Country: US (occurrence: None)
  Receive Date: 20241004
  Receipt Date: 20241004
  Transmission Date: 20250115
  Serious: Yes (Death)
  Sender: Public
  Company Number: None

PATIENT
  Age: 84 Year
  Sex: Female

DRUGS (24)
  1. TOBRAMYCIN [Suspect]
     Active Substance: TOBRAMYCIN\TOBRAMYCIN SULFATE
     Indication: Bronchiectasis
     Dosage: 5 ML BID ORAL ?
     Route: 048
     Dates: start: 20200301, end: 20240927
  2. IPRATROPIUM/ALBUTEROL 0.5/3MG [Concomitant]
  3. MELATONIN 10MG [Concomitant]
  4. MIRALAX [Concomitant]
     Active Substance: POLYETHYLENE GLYCOL 3350
  5. VITAMINS [Concomitant]
     Active Substance: VITAMINS
  6. MYRBETRIQ 25MG [Concomitant]
  7. OMEPRAZOLE 40MG [Concomitant]
  8. ONDANSETRON 4MG [Concomitant]
  9. PRAVACHOL 40MG [Concomitant]
  10. PROBIOTIC CAPSULE [Concomitant]
  11. RANITIDINE 300MG [Concomitant]
  12. SENNA 8.6 [Concomitant]
  13. VITAMIN D3 1000MG [Concomitant]
  14. XARELTO 20MG [Concomitant]
  15. ACETYCYSTEINE 10%INH [Concomitant]
  16. MORPHINE SUL 15MG ER [Concomitant]
  17. CREON 6000MG [Concomitant]
  18. DULERA 100/5MCG ORAL INH [Concomitant]
  19. METHOCARBAMOL 750MG [Concomitant]
  20. RASAGITINE MESYLATE 0.5MG [Concomitant]
  21. CALCIUM CITRATE TABS [Concomitant]
  22. CYANOCOBALAMIN 1000MCG INJ [Concomitant]
  23. DULOXATINE DR 60MG [Concomitant]
  24. GABAPENTIN 300MG [Concomitant]

REACTIONS (1)
  - Death [None]

NARRATIVE: CASE EVENT DATE: 20240927
